FAERS Safety Report 12960353 (Version 1)
Quarter: 2016Q4

REPORT INFORMATION
  Report Type: Spontaneous
  Country: US (occurrence: US)
  Receive Date: 20161120
  Receipt Date: 20161120
  Transmission Date: 20170207
  Serious: Yes (Disabling)
  Sender: FDA-Public Use
  Company Number: None

PATIENT
  Age: 30 Year
  Sex: Male
  Weight: 107.1 kg

DRUGS (4)
  1. CIPROFLOXACIN. [Suspect]
     Active Substance: CIPROFLOXACIN
     Indication: EPIDIDYMITIS
     Dosage: ?          QUANTITY:1 TABLET(S);?
     Route: 048
  2. NAPROXEN. [Concomitant]
     Active Substance: NAPROXEN
  3. PROBIOTICS [Concomitant]
     Active Substance: PROBIOTICS NOS
  4. VITAMIN PILLS [Concomitant]

REACTIONS (11)
  - Diarrhoea [None]
  - Back pain [None]
  - Vision blurred [None]
  - Muscular weakness [None]
  - Musculoskeletal stiffness [None]
  - Asthenia [None]
  - Peripheral coldness [None]
  - Hypoaesthesia [None]
  - Anxiety [None]
  - Arthropathy [None]
  - Myalgia [None]

NARRATIVE: CASE EVENT DATE: 20161101
